FAERS Safety Report 17125076 (Version 1)
Quarter: 2019Q4

REPORT INFORMATION
  Report Type: Spontaneous
  Country: CA (occurrence: CA)
  Receive Date: 20191206
  Receipt Date: 20191206
  Transmission Date: 20200122
  Serious: Yes (Hospitalization, Other)
  Sender: FDA-Public Use
  Company Number: CA-B.BRAUN MEDICAL INC.-2077571

PATIENT
  Age: 54 Year
  Sex: Male

DRUGS (8)
  1. VITAMIN B6 [Suspect]
     Active Substance: PYRIDOXINE HYDROCHLORIDE
     Route: 048
  2. DILAUDID [Suspect]
     Active Substance: HYDROMORPHONE HYDROCHLORIDE
     Route: 065
  3. MIRTAZAPINE. [Suspect]
     Active Substance: MIRTAZAPINE
     Route: 065
  4. SODIUM CHLORIDE INJECTION USP 0264-7800-09 [Suspect]
     Active Substance: SODIUM CHLORIDE
     Indication: PRODUCT USED FOR UNKNOWN INDICATION
     Route: 065
  5. POTASSIUM [Suspect]
     Active Substance: POTASSIUM
     Route: 065
  6. HUMIRA [Suspect]
     Active Substance: ADALIMUMAB
  7. TYROSINE [Suspect]
     Active Substance: TYROSINE
     Route: 048
  8. VITAMIN B3 [Suspect]
     Active Substance: NIACIN
     Route: 048

REACTIONS (13)
  - Loss of personal independence in daily activities [None]
  - Contusion [None]
  - Fatigue [None]
  - Post-traumatic pain [None]
  - Crohn^s disease [None]
  - Frequent bowel movements [None]
  - Infection [None]
  - Leg amputation [None]
  - Decreased appetite [None]
  - Dysgeusia [None]
  - Limb injury [None]
  - Memory impairment [None]
  - Weight decreased [None]
